FAERS Safety Report 4854610-8 (Version None)
Quarter: 2005Q4

REPORT INFORMATION
  Report Type: 
  Country: None (occurrence: None)
  Receive Date: 20051215
  Receipt Date: 20051005
  Transmission Date: 20060501
  Serious: Yes (Hospitalization)
  Sender: FDA-Public Use
  Company Number: US-MERCK-0510USA04017

PATIENT
  Age: 56 Year
  Sex: Female
  Weight: 116 kg

DRUGS (8)
  1. VIOXX [Suspect]
     Indication: ARTHRITIS
     Route: 048
     Dates: start: 20030101, end: 20040101
  2. VIOXX [Suspect]
     Route: 048
     Dates: start: 20030101, end: 20040101
  3. SINGULAIR [Concomitant]
     Route: 065
  4. PREDNISONE [Concomitant]
     Route: 065
  5. ALLEGRA [Concomitant]
     Route: 065
  6. ALBUTEROL [Concomitant]
     Route: 065
  7. ADVAIR DISKUS 100/50 [Concomitant]
     Route: 065
  8. [THERAPY UNSPECIFIED] [Concomitant]
     Route: 065

REACTIONS (3)
  - CARDIOVASCULAR DISORDER [None]
  - CELLULITIS [None]
  - PULMONARY EMBOLISM [None]
